FAERS Safety Report 21388413 (Version 2)
Quarter: 2022Q4

REPORT INFORMATION
  Report Type: Report from Study
  Country: TW (occurrence: TW)
  Receive Date: 20220928
  Receipt Date: 20221003
  Transmission Date: 20230112
  Serious: Yes (Hospitalization)
  Sender: FDA-Public Use
  Company Number: TW-JNJFOC-20220946481

PATIENT
  Age: 51 Year
  Sex: Male
  Weight: 61.3 kg

DRUGS (3)
  1. AMIVANTAMAB [Suspect]
     Active Substance: AMIVANTAMAB
     Indication: Non-small cell lung cancer
     Dosage: LAST REPORTED DOSE 20-SEP-2022
     Route: 065
     Dates: start: 20220809
  2. CARBOPLATIN [Concomitant]
     Active Substance: CARBOPLATIN
     Indication: Non-small cell lung cancer
     Dosage: LAST REPORTED DOSE 20-SEP-2022
     Route: 065
     Dates: start: 20220809
  3. PEMETREXED [Concomitant]
     Active Substance: PEMETREXED
     Indication: Non-small cell lung cancer
     Dosage: LAST REPORTED DOSE 20-SEP-2022
     Route: 065
     Dates: start: 20220809

REACTIONS (2)
  - Embolism [Not Recovered/Not Resolved]
  - Skin infection [Not Recovered/Not Resolved]

NARRATIVE: CASE EVENT DATE: 20220909
